FAERS Safety Report 5793270-9 (Version None)
Quarter: 2008Q2

REPORT INFORMATION
  Report Type: 
  Country: None (occurrence: None)
  Receive Date: 20080626
  Receipt Date: 20080626
  Transmission Date: 20081010
  Serious: Yes (Hospitalization)
  Sender: FDA-Public Use
  Company Number: None

PATIENT
  Sex: Female
  Weight: 53.5244 kg

DRUGS (1)
  1. WELLBUTRIN XL [Suspect]
     Indication: BIPOLAR DISORDER
     Dosage: 100 MG ONE A DAY PO
     Route: 048
     Dates: start: 20080411, end: 20080522

REACTIONS (2)
  - CONVULSION [None]
  - SUICIDAL IDEATION [None]
